FAERS Safety Report 9602691 (Version 1)
Quarter: 2013Q4

REPORT INFORMATION
  Report Type: Spontaneous
  Country: DE (occurrence: None)
  Receive Date: 20131003
  Receipt Date: 20131003
  Transmission Date: 20140711
  Serious: Yes (Other)
  Sender: FDA-Public Use
  Company Number: 7239789

PATIENT
  Sex: Female

DRUGS (1)
  1. LEVOTHYROXINE (LEVOTHYROXINE) (LEVOTHYROXINE SODIUM) [Suspect]
     Indication: HYPOTHYROIDISM
     Dosage: 100 ORAL
     Route: 048
     Dates: start: 2006, end: 2012

REACTIONS (5)
  - Hyperthyroidism [None]
  - Anti-thyroid antibody [None]
  - Fatigue [None]
  - Myalgia [None]
  - Apathy [None]
